FAERS Safety Report 6237096-0 (Version None)
Quarter: 2009Q2

REPORT INFORMATION
  Report Type: 
  Country: None (occurrence: None)
  Receive Date: 20090619
  Receipt Date: 20090407
  Transmission Date: 20091009
  Serious: No
  Sender: FDA-Public Use
  Company Number: US-ASTRAZENECA-2009UW08688

PATIENT
  Sex: Female

DRUGS (3)
  1. SYMBICORT [Suspect]
     Route: 055
  2. ASMANEX TWISTHALER [Concomitant]
  3. FORADIL [Concomitant]

REACTIONS (1)
  - HEART RATE INCREASED [None]
